FAERS Safety Report 13564738 (Version 1)
Quarter: 2017Q2

REPORT INFORMATION
  Report Type: Spontaneous
  Country: IN (occurrence: IN)
  Receive Date: 20170519
  Receipt Date: 20170519
  Transmission Date: 20170830
  Serious: Yes (Hospitalization, Other)
  Sender: FDA-Public Use
  Company Number: IN-SHIRE-IN201710958

PATIENT
  Age: 58 Year
  Sex: Male

DRUGS (1)
  1. 476 (MESALAZINE/MESALAMINE) [Suspect]
     Active Substance: MESALAMINE
     Indication: CROHN^S DISEASE
     Dosage: UNK, UNKNOWN
     Route: 048

REACTIONS (3)
  - Pyloric stenosis [Recovered/Resolved]
  - Bezoar [Recovered/Resolved]
  - Off label use [Unknown]
